FAERS Safety Report 7812785-2 (Version None)
Quarter: 2011Q4

REPORT INFORMATION
  Report Type: 
  Country: None (occurrence: None)
  Receive Date: 20111013
  Receipt Date: 20111007
  Transmission Date: 20120403
  Serious: Yes (Hospitalization)
  Sender: FDA-Public Use
  Company Number: HU-PFIZER INC-2011242224

PATIENT
  Age: 77 Year
  Sex: Male
  Weight: 86 kg

DRUGS (3)
  1. PANTOPRAZOLE [Concomitant]
     Dosage: 40 MG, UNK
  2. RAMIPRIL [Concomitant]
     Dosage: UNK
  3. ATORVASTATIN CALCIUM [Suspect]
     Indication: BLOOD CHOLESTEROL INCREASED
     Dosage: 1XDAILY
     Dates: start: 20110101, end: 20110701

REACTIONS (2)
  - ENCEPHALOMALACIA [None]
  - CEREBRAL INFARCTION [None]
